FAERS Safety Report 4672612-1 (Version None)
Quarter: 2005Q2

REPORT INFORMATION
  Report Type: 
  Country: None (occurrence: None)
  Receive Date: 20050524
  Receipt Date: 20050513
  Transmission Date: 20051028
  Serious: Yes (Death)
  Sender: FDA-Public Use
  Company Number: CH-SANOFI-SYNTHELABO-A01200503358

PATIENT
  Age: 45 Year
  Sex: Male

DRUGS (8)
  1. STILNOX [Suspect]
     Indication: DRUG USE FOR UNKNOWN INDICATION
     Route: 048
     Dates: start: 20050113, end: 20050315
  2. TOLVON [Concomitant]
     Indication: DRUG USE FOR UNKNOWN INDICATION
     Dosage: 15 MG
     Route: 048
     Dates: start: 20050124, end: 20050124
  3. TOLVON [Concomitant]
     Dosage: 30 MG
     Route: 048
     Dates: start: 20050125, end: 20050126
  4. TOLVON [Concomitant]
     Dosage: 60 MG
     Route: 048
     Dates: start: 20050130, end: 20050211
  5. TOLVON [Concomitant]
     Dosage: 120 MG
     Route: 048
     Dates: start: 20050216, end: 20050315
  6. TOLVON [Concomitant]
     Dosage: 90 MG
     Route: 048
     Dates: start: 20050212, end: 20050215
  7. TOLVON [Concomitant]
     Dosage: 45 MG
     Route: 048
     Dates: start: 20050127, end: 20050129
  8. PRAZINE [Concomitant]
     Indication: DRUG USE FOR UNKNOWN INDICATION
     Dosage: 50 MG
     Route: 065
     Dates: start: 20050311, end: 20050315

REACTIONS (1)
  - COMPLETED SUICIDE [None]
